FAERS Safety Report 8764405 (Version 2)
Quarter: 2012Q4

REPORT INFORMATION
  Report Type: 
  Country: US (occurrence: US)
  Receive Date: 20120831
  Receipt Date: 20120831
  Transmission Date: 20130627
  Serious: Yes (Other)
  Sender: FDA-Public Use
  Company Number: PHEH2012US016290

PATIENT
  Age: 54 Year
  Sex: Female
  Weight: 99.77 kg

DRUGS (8)
  1. GILENYA [Suspect]
     Indication: MULTIPLE SCLEROSIS
     Dosage: 0.5 mg, QD
     Route: 048
     Dates: start: 20120809, end: 20120809
  2. CLONIDINE [Concomitant]
     Dosage: 0.2 mg, QD
  3. NIFEDIPINE [Concomitant]
     Dosage: 60 mg, QD
  4. LISINOPRIL [Concomitant]
     Dosage: 20 mg, BID
  5. REBIF                                   /NET/ [Concomitant]
     Dosage: 44 ug, TIW
     Route: 058
  6. BABY ASPIRIN [Concomitant]
     Dosage: 1 DF, QD
  7. IBUPROFEN [Concomitant]
  8. TOPROL XL [Concomitant]

REACTIONS (16)
  - Cataract [Unknown]
  - Bradycardia [Recovering/Resolving]
  - Secondary progressive multiple sclerosis [Unknown]
  - Asthenia [Unknown]
  - Muscle spasms [Unknown]
  - Pallor [Unknown]
  - Visual acuity reduced [Unknown]
  - Nystagmus [Unknown]
  - VIIth nerve paralysis [Unknown]
  - Hemiparesis [Unknown]
  - Extensor plantar response [Unknown]
  - Sensory loss [Unknown]
  - Ataxia [Unknown]
  - Vascular headache [Unknown]
  - Drug intolerance [Unknown]
  - Insomnia [Unknown]
